FAERS Safety Report 9594736 (Version 1)
Quarter: 2013Q3

REPORT INFORMATION
  Report Type: Spontaneous
  Country: US (occurrence: None)
  Receive Date: 20130927
  Receipt Date: 20130927
  Transmission Date: 20140515
  Serious: Yes (Other)
  Sender: FDA-Public Use
  Company Number: CABO-13003113

PATIENT
  Age: 60 Year
  Sex: Male

DRUGS (7)
  1. COMETRIQ (CABOZANTINIB) CAPSULE [Suspect]
     Indication: PROSTATE CANCER
     Route: 048
     Dates: start: 20130612, end: 20130806
  2. METFORMIN (METFORMIN) [Concomitant]
  3. DILTIAZEM (DILTIAZEM) [Concomitant]
  4. ATORVASTATIN (ATORVASTATIN) [Concomitant]
  5. LYRICA (PREGABALIN) [Concomitant]
  6. METOPROLOL (METOPROLOL) [Concomitant]
  7. PANTOPRAZOLE (PANTOPRAZOLE) [Concomitant]

REACTIONS (1)
  - Malignant neoplasm progression [None]
